FAERS Safety Report 23946767 (Version 1)
Quarter: 2024Q2

REPORT INFORMATION
  Report Type: Spontaneous
  Country: JP (occurrence: JP)
  Receive Date: 20240606
  Receipt Date: 20240606
  Transmission Date: 20240716
  Serious: Yes (Death, Other)
  Sender: FDA-Public Use
  Company Number: JP-ABBVIE-5787604

PATIENT
  Age: 83 Year
  Sex: Male

DRUGS (2)
  1. VENCLEXTA [Suspect]
     Active Substance: VENETOCLAX
     Indication: Chronic lymphocytic leukaemia
     Dosage: 50 MILLIGRAM, STARTED IN 2024. FORM STRENGTH 10 MILLIGRAM
     Route: 048
     Dates: end: 20240604
  2. VENCLEXTA [Suspect]
     Active Substance: VENETOCLAX
     Indication: Chronic lymphocytic leukaemia
     Dosage: 20 MILLIGRAM, FORM STRENGTH 10 MILLIGRAM. STOP IN 2024.
     Route: 048
     Dates: start: 20240525

REACTIONS (3)
  - Chronic lymphocytic leukaemia [Fatal]
  - Splenomegaly [Unknown]
  - Splenic haemorrhage [Unknown]

NARRATIVE: CASE EVENT DATE: 20240101
